FAERS Safety Report 20032023 (Version 2)
Quarter: 2021Q4

REPORT INFORMATION
  Report Type: Spontaneous
  Country: US (occurrence: US)
  Receive Date: 20211103
  Receipt Date: 20211119
  Transmission Date: 20220303
  Serious: No
  Sender: FDA-Public Use
  Company Number: US-CELGENE-USA-20211007912

PATIENT
  Age: 65 Year
  Sex: Male
  Weight: 57 kg

DRUGS (2)
  1. REVLIMID [Suspect]
     Active Substance: LENALIDOMIDE
     Indication: Plasma cell myeloma
     Dosage: 25 MILLIGRAM
     Route: 048
     Dates: start: 20210901
  2. FUROSEMIDE [Concomitant]
     Active Substance: FUROSEMIDE
     Indication: Thrombosis
     Dosage: UNKNOWN
     Route: 065

REACTIONS (3)
  - Oxygen saturation decreased [Unknown]
  - Peripheral swelling [Unknown]
  - Dry skin [Unknown]

NARRATIVE: CASE EVENT DATE: 20211011
